FAERS Safety Report 11899845 (Version 1)
Quarter: 2016Q1

REPORT INFORMATION
  Report Type: Report from Study
  Country: US (occurrence: US)
  Receive Date: 20160108
  Receipt Date: 20160108
  Transmission Date: 20160526
  Serious: No
  Sender: FDA-Public Use
  Company Number: US-ABBVIE-15P-163-1493618-00

PATIENT
  Age: 58 Year
  Sex: Female
  Weight: 57.2 kg

DRUGS (4)
  1. VIEKIRA PAK [Suspect]
     Active Substance: DASABUVIR\OMBITASVIR\PARITAPREVIR\RITONAVIR
     Indication: CHRONIC HEPATITIS C
     Dosage: 3 TABLETS IN AM, + 1 TABLET IN PM
     Route: 048
     Dates: start: 20151010, end: 20151011
  2. RIBAVIRIN. [Suspect]
     Active Substance: RIBAVIRIN
     Indication: CHRONIC HEPATITIS C
     Dosage: 400MG (2 TABLETS), AND 600MG (3 TABLETS)
     Route: 048
     Dates: start: 20151010, end: 20151011
  3. VIEKIRA PAK [Suspect]
     Active Substance: DASABUVIR\OMBITASVIR\PARITAPREVIR\RITONAVIR
     Dosage: 3 TABLETS IN AM, + 1 TABLET IN PM
     Route: 048
     Dates: start: 20151025
  4. RIBAVIRIN. [Suspect]
     Active Substance: RIBAVIRIN
     Dosage: 400MG (2 TABLETS), AND 600MG (3 TABLETS)
     Route: 048
     Dates: start: 20151025

REACTIONS (9)
  - Dizziness [Recovered/Resolved]
  - Nausea [Unknown]
  - Aphonia [Recovered/Resolved]
  - Nasopharyngitis [Recovered/Resolved]
  - Dizziness [Unknown]
  - Faeces discoloured [Not Recovered/Not Resolved]
  - Dysphonia [Recovered/Resolved]
  - Nausea [Recovered/Resolved]
  - Cough [Recovering/Resolving]

NARRATIVE: CASE EVENT DATE: 20151010
